FAERS Safety Report 5509870-7 (Version None)
Quarter: 2007Q4

REPORT INFORMATION
  Report Type: 
  Country: None (occurrence: None)
  Receive Date: 20071107
  Receipt Date: 20071107
  Transmission Date: 20080405
  Serious: Yes (Hospitalization)
  Sender: FDA-Public Use
  Company Number: None

PATIENT
  Sex: Female
  Weight: 79.27 kg

DRUGS (4)
  1. CISPLATIN [Suspect]
     Dosage: 90 MG
  2. DOXORUBICIN HCL [Suspect]
     Dosage: 81 MG
  3. G-CSF(FILGRASTIM, AMGEN) [Suspect]
     Dosage: 6 MG
  4. TAXOL [Suspect]
     Dosage: 288 MG

REACTIONS (7)
  - ANOREXIA [None]
  - ASTHENIA [None]
  - CENTRAL LINE INFECTION [None]
  - DEHYDRATION [None]
  - FEBRILE NEUTROPENIA [None]
  - INCONTINENCE [None]
  - URINARY TRACT INFECTION [None]
